FAERS Safety Report 7088136-0 (Version None)
Quarter: 2010Q4

REPORT INFORMATION
  Report Type: 
  Country: None (occurrence: None)
  Receive Date: 20101108
  Receipt Date: 20101029
  Transmission Date: 20110411
  Serious: No
  Sender: FDA-Public Use
  Company Number: GB-ABBOTT-10P-167-0671421-00

PATIENT
  Sex: Male
  Weight: 89 kg

DRUGS (13)
  1. HUMIRA [Suspect]
     Indication: ANKYLOSING SPONDYLITIS
     Route: 058
     Dates: start: 20080401, end: 20101001
  2. SULPHASALAZINE [Concomitant]
     Indication: ARTHRITIS
     Route: 048
  3. DIGOXIN [Concomitant]
     Indication: ATRIAL TACHYCARDIA
     Route: 048
  4. ASPIRIN [Concomitant]
     Indication: CARDIAC DISORDER
     Route: 048
  5. OMEPRAZOLE [Concomitant]
     Indication: GASTROOESOPHAGEAL REFLUX DISEASE
     Route: 048
  6. PERINDOPRIL [Concomitant]
     Indication: CARDIAC DISORDER
     Route: 048
  7. FUROSEMIDE [Concomitant]
     Indication: CARDIAC DISORDER
     Route: 048
  8. FERROUS SULFATE TAB [Concomitant]
     Indication: GASTROINTESTINAL HAEMORRHAGE
     Route: 048
  9. BISOPROLOL [Concomitant]
     Indication: CARDIAC DISORDER
     Route: 048
  10. MEBEVERINE [Concomitant]
     Indication: IRRITABLE BOWEL SYNDROME
     Route: 048
  11. TRAMADOL HCL [Concomitant]
     Indication: PAIN
     Route: 048
  12. CALCICHEW D3 [Concomitant]
     Indication: OSTEOPOROSIS
     Route: 048
  13. ATORVASTATIN [Concomitant]
     Indication: BLOOD CHOLESTEROL INCREASED
     Dosage: NOCTE
     Route: 048

REACTIONS (3)
  - ACTIVATED PARTIAL THROMBOPLASTIN TIME PROLONGED [None]
  - ANTIPHOSPHOLIPID ANTIBODIES POSITIVE [None]
  - RECTAL HAEMORRHAGE [None]
